FAERS Safety Report 5122389-0 (Version None)
Quarter: 2006Q4

REPORT INFORMATION
  Report Type: 
  Country: None (occurrence: None)
  Receive Date: 20061004
  Receipt Date: 20060922
  Transmission Date: 20070319
  Serious: Yes (Disabling)
  Sender: FDA-Public Use
  Company Number: 06H-163-0310406-00

PATIENT
  Age: 16 Year
  Sex: Male

DRUGS (2)
  1. MARCAINE INJECTION (BUPIVACAINE HYDROCHLORIDE)  (BUPIVACAINE [Suspect]
     Indication: PAIN
     Dosage: NOT REPORTED, NOT REPORTED, INJECTION
  2. STEROIDS (CORTICOSTEROIDS) [Suspect]
     Indication: PAIN
     Dosage: NOT REPORTED, NOT REPORTED, INJECTION

REACTIONS (4)
  - CHONDROLYSIS [None]
  - JOINT DESTRUCTION [None]
  - MUSCULOSKELETAL PAIN [None]
  - SYNOVITIS [None]
